FAERS Safety Report 10757369 (Version 1)
Quarter: 2015Q1

REPORT INFORMATION
  Report Type: Spontaneous
  Country: JP (occurrence: None)
  Receive Date: 20150130
  Receipt Date: 20150130
  Transmission Date: 20150721
  Serious: Yes (Hospitalization)
  Sender: FDA-Public Use
  Company Number: 2014FE03539

PATIENT
  Age: 63 Year
  Sex: Male

DRUGS (3)
  1. TAMSULOSIN HYDROCHLORIDE (TAMSULOSIN HYDROCHLORIDE) [Concomitant]
     Active Substance: TAMSULOSIN HYDROCHLORIDE
  2. CASODEX [Concomitant]
     Active Substance: BICALUTAMIDE
  3. GONAX (DEGARELIX) POWDER AND SOLVENT FOR SOLUTION FOR INJECTION, 80MG [Suspect]
     Active Substance: DEGARELIX
     Indication: PROSTATE CANCER
     Route: 058
     Dates: start: 20141121, end: 20141121

REACTIONS (3)
  - Hyperhidrosis [None]
  - Anaphylactic reaction [None]
  - Rash [None]

NARRATIVE: CASE EVENT DATE: 20141121
